FAERS Safety Report 7360504-9 (Version None)
Quarter: 2011Q1

REPORT INFORMATION
  Report Type: 
  Country: None (occurrence: None)
  Receive Date: 20110318
  Receipt Date: 20110316
  Transmission Date: 20110831
  Serious: No
  Sender: FDA-Public Use
  Company Number: US-PFIZER INC-2011058281

PATIENT
  Sex: Female
  Weight: 75.737 kg

DRUGS (6)
  1. PAXIL [Concomitant]
     Indication: DEPRESSION
     Dosage: UNK
  2. PROTONIX [Concomitant]
     Indication: GASTROOESOPHAGEAL REFLUX DISEASE
     Dosage: UNK
  3. AMOXICILLIN [Concomitant]
     Indication: TOOTHACHE
     Dosage: UNK
  4. PAXIL [Concomitant]
     Indication: ANXIETY
  5. CAPTOPRIL [Concomitant]
     Indication: HYPERTENSION
     Dosage: UNK
  6. NEURONTIN [Suspect]
     Indication: NEURALGIA
     Dosage: 300 MG, 2X/DAY
     Route: 048
     Dates: start: 20110302, end: 20110315

REACTIONS (1)
  - WEIGHT INCREASED [None]
